FAERS Safety Report 9159730 (Version 5)
Quarter: 2013Q2

REPORT INFORMATION
  Report Type: Spontaneous
  Country: US (occurrence: None)
  Receive Date: 20130220
  Receipt Date: 20130506
  Transmission Date: 20140414
  Serious: Yes (Other)
  Sender: FDA-Public Use
  Company Number: AUR-APL-2013-01418

PATIENT
  Age: 59 Year
  Sex: Male
  Weight: 97.51 kg

DRUGS (12)
  1. METFORMIN [Suspect]
     Indication: BLOOD GLUCOSE ABNORMAL
     Dosage: 1000 MG (500 MG, 2 IN 1 D)
     Route: 048
     Dates: start: 20130115, end: 20130127
  2. GLUCOTROL [Suspect]
     Indication: BLOOD GLUCOSE INCREASED
     Dosage: 10 MG (5 MG,2 IN 1 D),ORAL
     Route: 048
     Dates: end: 201302
  3. GLUCOTROL [Suspect]
     Indication: DIABETES MELLITUS
     Dosage: 10 MG (5 MG,2 IN 1 D),ORAL
     Route: 048
     Dates: end: 201302
  4. NEURONTIN (GABAPENTIN) [Suspect]
     Indication: SCIATICA
     Dosage: 600 MG (300 MG, 2 IN 1 D), ORAL
     Route: 048
     Dates: end: 201302
  5. NEURONTIN (GABAPENTIN) [Suspect]
     Dosage: 600 MG (300 MG, 2 IN 1 D), ORAL
     Route: 048
     Dates: end: 201302
  6. ASPIRIN (ACETYLSALICYLIC ACID) [Concomitant]
  7. HYDROCHLOROTHIAZIDE WITH TRIAMTERENE (DYAZIDE) [Concomitant]
  8. ATENOLOL (ATENOLOL) [Concomitant]
  9. XANAX (ALPRAZOLAM) [Concomitant]
  10. FLEXERIL (CYCLOBENZAPRINE HYDROCHLORIDE) [Concomitant]
  11. TYLENOL (PARACETAMOL) [Concomitant]
  12. LORCET PLUS (VICODIN) [Concomitant]

REACTIONS (11)
  - Weight decreased [None]
  - Blood glucose increased [None]
  - Myocardial infarction [None]
  - Dyspnoea [None]
  - Blood glucose fluctuation [None]
  - Feeling abnormal [None]
  - Protein total increased [None]
  - Blood cholesterol increased [None]
  - Laboratory test abnormal [None]
  - Malaise [None]
  - Pneumonia [None]
